FAERS Safety Report 9321073 (Version 1)
Quarter: 2013Q2

REPORT INFORMATION
  Report Type: Spontaneous
  Country: US (occurrence: None)
  Receive Date: 20130530
  Receipt Date: 20130530
  Transmission Date: 20140414
  Serious: No
  Sender: FDA-Public Use
  Company Number: None

PATIENT
  Age: 61 Year
  Sex: Male
  Weight: 108.86 kg

DRUGS (10)
  1. PIOGLITAZONE HYDROCHLORIDE [Suspect]
     Indication: TYPE 2 DIABETES MELLITUS
     Route: 048
     Dates: start: 20121216, end: 20120519
  2. ACTOS [Concomitant]
  3. VICTOZA [Concomitant]
  4. LYRICA [Concomitant]
  5. ASA [Concomitant]
  6. CELEBREX [Concomitant]
  7. LISINOPRIL [Concomitant]
  8. PRILOSEC OTC [Concomitant]
  9. RARE TYLENOL PM [Concomitant]
  10. ZETIA [Concomitant]

REACTIONS (4)
  - Pain in extremity [None]
  - Asthenia [None]
  - Blood glucose increased [None]
  - Wound [None]
